FAERS Safety Report 11155362 (Version 1)
Quarter: 2015Q2

REPORT INFORMATION
  Report Type: Spontaneous
  Country: BE (occurrence: BE)
  Receive Date: 20150602
  Receipt Date: 20150602
  Transmission Date: 20150821
  Serious: Yes (Death)
  Sender: FDA-Public Use
  Company Number: BE-BAYER-2015-262524

PATIENT
  Age: 72 Year
  Sex: Male
  Weight: 67 kg

DRUGS (2)
  1. STIVARGA [Suspect]
     Active Substance: REGORAFENIB
     Indication: METASTASES TO LIVER
  2. STIVARGA [Suspect]
     Active Substance: REGORAFENIB
     Indication: COLON CANCER METASTATIC
     Dosage: DAILY DOSE 160 MG (40 MG 4 AT ONCE)
     Route: 048
     Dates: start: 20140319, end: 20140327

REACTIONS (6)
  - Bedridden [Recovering/Resolving]
  - Condition aggravated [Recovering/Resolving]
  - Nocturia [Recovering/Resolving]
  - Feeding disorder [Fatal]
  - Weight decreased [Recovering/Resolving]
  - Asthenia [Recovering/Resolving]

NARRATIVE: CASE EVENT DATE: 20140319
